FAERS Safety Report 18305682 (Version 24)
Quarter: 2022Q3

REPORT INFORMATION
  Report Type: Spontaneous
  Country: CA (occurrence: CA)
  Receive Date: 20200924
  Receipt Date: 20220914
  Transmission Date: 20221026
  Serious: Yes (Other)
  Sender: FDA-Public Use
  Company Number: CA-CELLTRION INC.-2019CA028215

PATIENT

DRUGS (43)
  1. INFLECTRA [Suspect]
     Active Substance: INFLIXIMAB-DYYB
     Indication: Crohn^s disease
     Dosage: 400 MG, 0, 2, 6,THEN EVERY 8 WEEKS
     Route: 042
     Dates: start: 20191009, end: 20200123
  2. INFLECTRA [Suspect]
     Active Substance: INFLIXIMAB-DYYB
     Dosage: 400 MG, 0, 2, 6,THEN EVERY 8 WEEKS
     Route: 042
     Dates: start: 20191009
  3. INFLECTRA [Suspect]
     Active Substance: INFLIXIMAB-DYYB
     Dosage: 400 MG, 0, 2, 6,THEN EVERY 8 WEEKS
     Route: 042
     Dates: start: 20191009
  4. INFLECTRA [Suspect]
     Active Substance: INFLIXIMAB-DYYB
     Dosage: 400 MG, 0, 2, 6,THEN EVERY 8 WEEKS
     Route: 042
     Dates: start: 20191023
  5. INFLECTRA [Suspect]
     Active Substance: INFLIXIMAB-DYYB
     Dosage: 400 MG, 0, 2, 6,THEN EVERY 8 WEEKS
     Route: 042
     Dates: start: 20191127
  6. INFLECTRA [Suspect]
     Active Substance: INFLIXIMAB-DYYB
     Dosage: 400 MG, 0, 2, 6,THEN EVERY 8 WEEKS
     Route: 042
     Dates: start: 20200123, end: 20200123
  7. INFLECTRA [Suspect]
     Active Substance: INFLIXIMAB-DYYB
     Dosage: 400 MG EVERY 4 WEEKS
     Route: 042
     Dates: start: 20200220, end: 20200220
  8. INFLECTRA [Suspect]
     Active Substance: INFLIXIMAB-DYYB
     Dosage: 400 MG EVERY 4 WEEKS
     Route: 042
     Dates: start: 20200220, end: 20200612
  9. INFLECTRA [Suspect]
     Active Substance: INFLIXIMAB-DYYB
     Dosage: 400 MG EVERY 4 WEEKS
     Route: 042
     Dates: start: 20200320
  10. INFLECTRA [Suspect]
     Active Substance: INFLIXIMAB-DYYB
     Dosage: 400 MG EVERY 4 WEEKS
     Route: 042
     Dates: start: 20200417
  11. INFLECTRA [Suspect]
     Active Substance: INFLIXIMAB-DYYB
     Dosage: 400 MG EVERY 4 WEEKS
     Route: 042
     Dates: start: 20200612
  12. INFLECTRA [Suspect]
     Active Substance: INFLIXIMAB-DYYB
     Dosage: 400 MG EVERY 4 WEEKS
     Route: 042
     Dates: start: 20200713
  13. INFLECTRA [Suspect]
     Active Substance: INFLIXIMAB-DYYB
     Dosage: 400 MG EVERY 4 WEEKS
     Route: 042
     Dates: start: 20200713
  14. INFLECTRA [Suspect]
     Active Substance: INFLIXIMAB-DYYB
     Dosage: 800 MG EVERY 4 WEEKS
     Route: 042
     Dates: start: 20200713
  15. INFLECTRA [Suspect]
     Active Substance: INFLIXIMAB-DYYB
     Dosage: 400 MG EVERY 4 WEEKS
     Route: 042
     Dates: start: 20200901
  16. INFLECTRA [Suspect]
     Active Substance: INFLIXIMAB-DYYB
     Dosage: 400 MG EVERY 4 WEEKS
     Route: 042
     Dates: start: 20201008
  17. INFLECTRA [Suspect]
     Active Substance: INFLIXIMAB-DYYB
     Dosage: 400 MG EVERY 4 WEEKS
     Route: 042
     Dates: start: 20201008
  18. INFLECTRA [Suspect]
     Active Substance: INFLIXIMAB-DYYB
     Dosage: 400 MG EVERY 4 WEEKS
     Route: 042
     Dates: start: 20201103
  19. INFLECTRA [Suspect]
     Active Substance: INFLIXIMAB-DYYB
     Dosage: 400 MG EVERY 4 WEEKS
     Route: 042
     Dates: start: 20201103
  20. INFLECTRA [Suspect]
     Active Substance: INFLIXIMAB-DYYB
     Dosage: 400 MG EVERY 4 WEEKS
     Route: 042
     Dates: start: 20201204
  21. INFLECTRA [Suspect]
     Active Substance: INFLIXIMAB-DYYB
     Dosage: 400 MG EVERY 4 WEEKS
     Route: 042
     Dates: start: 20210105
  22. INFLECTRA [Suspect]
     Active Substance: INFLIXIMAB-DYYB
     Dosage: 400 MG EVERY 4 WEEKS
     Route: 042
     Dates: start: 20210303
  23. INFLECTRA [Suspect]
     Active Substance: INFLIXIMAB-DYYB
     Dosage: 400 MG EVERY 4 WEEKS
     Route: 042
     Dates: start: 20210406
  24. INFLECTRA [Suspect]
     Active Substance: INFLIXIMAB-DYYB
     Dosage: 400 MG EVERY 4 WEEKS
     Route: 042
     Dates: start: 20210406
  25. INFLECTRA [Suspect]
     Active Substance: INFLIXIMAB-DYYB
     Dosage: 400 MG EVERY 4 WEEKS
     Route: 042
     Dates: start: 20210406
  26. INFLECTRA [Suspect]
     Active Substance: INFLIXIMAB-DYYB
     Dosage: 400 MG EVERY 4 WEEKS
     Route: 042
     Dates: start: 20210504
  27. INFLECTRA [Suspect]
     Active Substance: INFLIXIMAB-DYYB
     Dosage: 400 MG EVERY 4 WEEKS
     Route: 042
     Dates: start: 20210504
  28. INFLECTRA [Suspect]
     Active Substance: INFLIXIMAB-DYYB
     Dosage: 400 MG EVERY 4 WEEKS
     Route: 042
     Dates: start: 20210607
  29. INFLECTRA [Suspect]
     Active Substance: INFLIXIMAB-DYYB
     Dosage: 400 MG EVERY 4 WEEK
     Route: 042
     Dates: start: 20210702
  30. INFLECTRA [Suspect]
     Active Substance: INFLIXIMAB-DYYB
     Dosage: 400 MG EVERY 4 WEEK
     Route: 042
     Dates: start: 20210830
  31. INFLECTRA [Suspect]
     Active Substance: INFLIXIMAB-DYYB
     Dosage: 400 MG EVERY 4 WEEK
     Route: 042
     Dates: start: 20211025
  32. INFLECTRA [Suspect]
     Active Substance: INFLIXIMAB-DYYB
     Dosage: 400 MG EVERY 4 WEEK
     Route: 042
     Dates: start: 20211025
  33. INFLECTRA [Suspect]
     Active Substance: INFLIXIMAB-DYYB
     Dosage: 800 MG EVERY 4 WEEKS
     Route: 042
     Dates: start: 20211119
  34. INFLECTRA [Suspect]
     Active Substance: INFLIXIMAB-DYYB
     Dosage: 800 MG EVERY 4 WEEKS
     Route: 042
     Dates: start: 20211215
  35. INFLECTRA [Suspect]
     Active Substance: INFLIXIMAB-DYYB
     Dosage: 800 MG EVERY 4 WEEKS
     Route: 042
     Dates: start: 20220112
  36. INFLECTRA [Suspect]
     Active Substance: INFLIXIMAB-DYYB
     Dosage: 800 MG EVERY 4 WEEKS
     Route: 042
     Dates: start: 20220210
  37. INFLECTRA [Suspect]
     Active Substance: INFLIXIMAB-DYYB
     Dosage: 800 MG EVERY 4 WEEKS
     Route: 042
     Dates: start: 20220314
  38. INFLECTRA [Suspect]
     Active Substance: INFLIXIMAB-DYYB
     Dosage: 800 MG EVERY 4 WEEKS
     Route: 042
     Dates: start: 20220406
  39. INFLECTRA [Suspect]
     Active Substance: INFLIXIMAB-DYYB
     Dosage: 800 MG EVERY 4 WEEKS
     Route: 042
     Dates: start: 20220505
  40. INFLECTRA [Suspect]
     Active Substance: INFLIXIMAB-DYYB
     Dosage: 800 MG EVERY 4 WEEKS
     Route: 042
     Dates: start: 20220704
  41. INFLECTRA [Suspect]
     Active Substance: INFLIXIMAB-DYYB
     Dosage: 800 MG EVERY 4 WEEKS
     Route: 042
     Dates: start: 20220803
  42. INFLECTRA [Suspect]
     Active Substance: INFLIXIMAB-DYYB
     Dosage: 800 MG EVERY 4 WEEKS
     Route: 042
     Dates: start: 20220831
  43. METHOTREXATE [Concomitant]
     Active Substance: METHOTREXATE
     Dosage: 1 DF

REACTIONS (12)
  - Immunosuppression [Unknown]
  - Uveitis [Unknown]
  - Vein rupture [Unknown]
  - Poor venous access [Unknown]
  - Condition aggravated [Not Recovered/Not Resolved]
  - Heart rate decreased [Unknown]
  - Back pain [Unknown]
  - Arthralgia [Not Recovered/Not Resolved]
  - Inappropriate schedule of product administration [Unknown]
  - Intentional product use issue [Unknown]
  - Off label use [Unknown]
  - Off label use [Unknown]

NARRATIVE: CASE EVENT DATE: 20200123
